FAERS Safety Report 4866950-7 (Version None)
Quarter: 2005Q4

REPORT INFORMATION
  Report Type: 
  Country: None (occurrence: None)
  Receive Date: 20051227
  Receipt Date: 20051017
  Transmission Date: 20060501
  Serious: Yes (Death, Hospitalization, Disabling, Other)
  Sender: FDA-Public Use
  Company Number: US-MERCK-0510USA07687

PATIENT
  Age: 51 Year
  Sex: Male
  Weight: 113 kg

DRUGS (4)
  1. VIOXX [Suspect]
     Indication: ARTHRITIS
     Route: 048
     Dates: start: 20000101, end: 20031001
  2. DILANTIN [Concomitant]
     Indication: CONVULSION
     Route: 065
  3. COUMADIN [Concomitant]
     Route: 065
  4. ZOCOR [Concomitant]
     Route: 048
     Dates: start: 20030609

REACTIONS (7)
  - CEREBROVASCULAR ACCIDENT [None]
  - COAGULOPATHY [None]
  - DEATH [None]
  - HIP ARTHROPLASTY [None]
  - KNEE ARTHROPLASTY [None]
  - MYOCARDIAL INFARCTION [None]
  - PULMONARY EMBOLISM [None]
